FAERS Safety Report 15474709 (Version 1)
Quarter: 2018Q4

REPORT INFORMATION
  Report Type: Spontaneous
  Country: IT (occurrence: IT)
  Receive Date: 20181008
  Receipt Date: 20181008
  Transmission Date: 20190205
  Serious: Yes (Other)
  Sender: FDA-Public Use
  Company Number: IT-BEH-2018095342

PATIENT
  Age: 14 Year
  Sex: Female

DRUGS (7)
  1. BUDESONIDE. [Concomitant]
     Active Substance: BUDESONIDE
     Dosage: ()
     Route: 065
  2. FLUCONAZOLE. [Concomitant]
     Active Substance: FLUCONAZOLE
     Dosage: ()
     Route: 065
  3. ONDANSETRONE HIKMA [Concomitant]
     Active Substance: ONDANSETRON
     Dosage: ()
     Route: 065
  4. PRIVIGEN [Suspect]
     Active Substance: HUMAN IMMUNOGLOBULIN G
     Indication: HYPOGAMMAGLOBULINAEMIA
     Dosage: 400MG,100MG/ML
     Route: 042
     Dates: start: 20180911, end: 20180911
  5. URBASON                            /00049601/ [Concomitant]
     Active Substance: METHYLPREDNISOLONE
     Route: 065
  6. TRAMADOL HYDROCHLORIDE. [Concomitant]
     Active Substance: TRAMADOL HYDROCHLORIDE
     Dosage: ()
     Route: 065
  7. METRONIDAZOLE. [Concomitant]
     Active Substance: METRONIDAZOLE
     Dosage: ()
     Route: 065

REACTIONS (4)
  - Chills [Recovered/Resolved]
  - Vasoconstriction [Recovered/Resolved]
  - Tremor [Recovered/Resolved]
  - Hyperpyrexia [Recovered/Resolved]

NARRATIVE: CASE EVENT DATE: 20180911
